FAERS Safety Report 11156061 (Version 2)
Quarter: 2015Q2

REPORT INFORMATION
  Report Type: Spontaneous
  Country: TR (occurrence: TR)
  Receive Date: 20150602
  Receipt Date: 20150605
  Transmission Date: 20150821
  Serious: Yes (Death)
  Sender: FDA-Public Use
  Company Number: TR-B.I. PHARMACEUTICALS,INC./RIDGEFIELD-2015-BI-28667GD

PATIENT
  Age: 41 Year
  Sex: Female

DRUGS (2)
  1. COMBIVENT [Suspect]
     Active Substance: ALBUTEROL SULFATE\IPRATROPIUM BROMIDE
     Indication: RESPIRATORY DISTRESS
     Dosage: IPRATROPIUM BROMIDE/SALBUTAMOL: 1 MG/5 MG
     Route: 055
  2. OXYGEN. [Concomitant]
     Active Substance: OXYGEN
     Indication: RESPIRATORY DISTRESS
     Dosage: 4 L/MIN
     Route: 055

REACTIONS (3)
  - Product use issue [Unknown]
  - Respiratory failure [Fatal]
  - Drug ineffective [Fatal]
